FAERS Safety Report 16360864 (Version 2)
Quarter: 2020Q1

REPORT INFORMATION
  Report Type: Report from Study
  Country: UG (occurrence: UG)
  Receive Date: 20190528
  Receipt Date: 20200228
  Transmission Date: 20200409
  Serious: Yes (Congenital Anomaly)
  Sender: FDA-Public Use
  Company Number: UG-VIIV HEALTHCARE LIMITED-UG2018GSK158495

PATIENT
  Sex: Male

DRUGS (3)
  1. NEVIRAPINE SYRUP [Concomitant]
     Dosage: 1.5 ML, UNK
     Route: 048
     Dates: start: 20180826
  2. COTRIMOXAZOLE [Concomitant]
     Active Substance: SULFAMETHOXAZOLE\TRIMETHOPRIM
     Dosage: 120 MG
     Dates: start: 20181003, end: 20190224
  3. DOLUTEGRAVIR [Suspect]
     Active Substance: DOLUTEGRAVIR
     Indication: HIV INFECTION
     Dosage: 50 MG, QD
     Route: 064
     Dates: start: 20180626

REACTIONS (1)
  - Congenital skin dimples [Recovered/Resolved]

NARRATIVE: CASE EVENT DATE: 20180826
